FAERS Safety Report 5890002-0 (Version None)
Quarter: 2008Q3

REPORT INFORMATION
  Report Type: 
  Country: None (occurrence: None)
  Receive Date: 20080919
  Receipt Date: 20080908
  Transmission Date: 20090109
  Serious: Yes (Other)
  Sender: FDA-Public Use
  Company Number: US-PFIZER INC-2008039779

PATIENT
  Sex: Female
  Weight: 113.4 kg

DRUGS (18)
  1. GEODON [Suspect]
     Indication: BIPOLAR DISORDER
     Dates: start: 20070201, end: 20080501
  2. KLONOPIN [Suspect]
  3. AMBIEN [Suspect]
  4. DEPAKOTE [Suspect]
  5. VALSARTAN [Concomitant]
     Indication: BLOOD PRESSURE
  6. HYDROCHLOROTHIAZIDE [Concomitant]
  7. ACETYL SALICYLIC ACID COMPOUND TAB [Concomitant]
  8. BYETTA [Concomitant]
     Indication: DIABETES MELLITUS
  9. METFORMIN HCL [Concomitant]
  10. AVANDIA [Concomitant]
  11. SIMVASTATIN [Concomitant]
  12. GLIPIZIDE [Concomitant]
  13. TRAZODONE HCL [Concomitant]
     Indication: SLEEP DISORDER
  14. ALPHAGAN [Concomitant]
     Indication: GLAUCOMA
  15. XALATAN [Concomitant]
     Indication: GLAUCOMA
  16. XANAX [Concomitant]
  17. ROZEREM [Concomitant]
     Indication: SLEEP DISORDER
  18. AMITIZA [Concomitant]
     Indication: CONSTIPATION

REACTIONS (5)
  - ATRIOVENTRICULAR BLOCK [None]
  - DEPRESSION [None]
  - PARKINSONISM [None]
  - SEDATION [None]
  - WEIGHT DECREASED [None]
